FAERS Safety Report 8764274 (Version 1)
Quarter: 2012Q4

REPORT INFORMATION
  Report Type: Report from Study
  Country: CA (occurrence: CA)
  Receive Date: 20120831
  Receipt Date: 20120831
  Transmission Date: 20130627
  Serious: Yes (Hospitalization)
  Sender: FDA-Public Use
  Company Number: CA-ABBOTT-12P-028-0973804-00

PATIENT
  Sex: Male
  Weight: 92.62 kg

DRUGS (1)
  1. LUPRON DEPOT 30 MG [Suspect]
     Indication: PROSTATE CANCER
     Route: 050
     Dates: start: 2003

REACTIONS (5)
  - Streptococcal infection [Recovering/Resolving]
  - Urinary bladder haemorrhage [Unknown]
  - Hypotension [Unknown]
  - Asthenia [Recovering/Resolving]
  - Blood sodium decreased [Unknown]
